FAERS Safety Report 5874548-7 (Version None)
Quarter: 2008Q3

REPORT INFORMATION
  Report Type: 
  Country: None (occurrence: None)
  Receive Date: 20080909
  Receipt Date: 20080902
  Transmission Date: 20090109
  Serious: Yes (Death, Life-Threatening, Hospitalization)
  Sender: FDA-Public Use
  Company Number: PHEH1995US03492

PATIENT
  Sex: Female
  Weight: 66.2 kg

DRUGS (6)
  1. NEORAL [Suspect]
     Dosage: UNK MG, OT
     Route: 048
     Dates: start: 19950922
  2. POTASSIUM (POTASSIUM) [Concomitant]
     Dates: start: 19951002
  3. GANCICLOVIR [Concomitant]
     Dates: start: 19950927
  4. CIPROFLOXACIN [Concomitant]
  5. FLAGYL [Concomitant]
  6. VANCOMYCIN [Concomitant]

REACTIONS (7)
  - CYTOMEGALOVIRUS INFECTION [None]
  - DEATH [None]
  - EMOTIONAL DISTRESS [None]
  - HEPATIC FUNCTION ABNORMAL [None]
  - HYPOTENSION [None]
  - PYREXIA [None]
  - SEPSIS [None]
